FAERS Safety Report 25096473 (Version 3)
Quarter: 2025Q1

REPORT INFORMATION
  Report Type: Report from Study
  Country: CA (occurrence: CA)
  Receive Date: 20250319
  Receipt Date: 20250328
  Transmission Date: 20250409
  Serious: Yes (Hospitalization, Other)
  Sender: HLS THERAPEUTICS
  Company Number: CA-HLS-202401906

PATIENT
  Age: 22 Year
  Sex: Male

DRUGS (3)
  1. CLOZARIL [Suspect]
     Active Substance: CLOZAPINE
     Indication: Schizophrenia
     Route: 048
     Dates: end: 20240724
  2. SEROQUEL [Concomitant]
     Active Substance: QUETIAPINE FUMARATE
     Indication: Product used for unknown indication
     Route: 065
  3. Brexiprazole [Concomitant]
     Indication: Product used for unknown indication
     Route: 065

REACTIONS (5)
  - Back pain [Unknown]
  - Myocarditis [Recovered/Resolved]
  - Ejection fraction decreased [Recovered/Resolved]
  - High density lipoprotein decreased [Unknown]
  - Ventricular hypokinesia [Unknown]

NARRATIVE: CASE EVENT DATE: 20240701
